FAERS Safety Report 16933979 (Version 2)
Quarter: 2020Q1

REPORT INFORMATION
  Report Type: Report from Study
  Country: US (occurrence: US)
  Receive Date: 20191018
  Receipt Date: 20200120
  Transmission Date: 20200409
  Serious: Yes (Other)
  Sender: FDA-Public Use
  Company Number: US-TEVA-2019-US-1123819

PATIENT
  Sex: Male

DRUGS (2)
  1. AUSTEDO [Suspect]
     Active Substance: DEUTETRABENAZINE
     Indication: TARDIVE DYSKINESIA
     Route: 048
     Dates: start: 20190726
  2. AUSTEDO [Suspect]
     Active Substance: DEUTETRABENAZINE
     Dosage: 12 MILLIGRAM DAILY;
     Route: 048
     Dates: end: 20191226

REACTIONS (7)
  - Blindness transient [Recovered/Resolved]
  - Anxiety [Unknown]
  - Visual impairment [Unknown]
  - Depression [Unknown]
  - Eye movement disorder [Recovered/Resolved]
  - Vision blurred [Unknown]
  - Eye disorder [Unknown]

NARRATIVE: CASE EVENT DATE: 2019
